FAERS Safety Report 9298047 (Version 2)
Quarter: 2013Q4

REPORT INFORMATION
  Report Type: Report from Study
  Country: JP (occurrence: JP)
  Receive Date: 20130520
  Receipt Date: 20131107
  Transmission Date: 20140711
  Serious: Yes (Hospitalization)
  Sender: FDA-Public Use
  Company Number: JP-ELI_LILLY_AND_COMPANY-JP201303007501

PATIENT
  Age: 82 Year
  Sex: Female

DRUGS (2)
  1. TERIPARATIDE [Suspect]
     Indication: PRODUCT USED FOR UNKNOWN INDICATION
     Route: 058
  2. TERIPARATIDE [Suspect]
     Dosage: UNK
     Route: 058
     Dates: start: 20130822

REACTIONS (3)
  - Compression fracture [Unknown]
  - Decreased appetite [Unknown]
  - Visual acuity reduced [Unknown]
